FAERS Safety Report 14093264 (Version 1)
Quarter: 2017Q4

REPORT INFORMATION
  Report Type: Spontaneous
  Country: US (occurrence: US)
  Receive Date: 20171016
  Receipt Date: 20171016
  Transmission Date: 20180321
  Serious: No
  Sender: FDA-Public Use
  Company Number: US-BAYER-2017-186441

PATIENT
  Sex: Female

DRUGS (3)
  1. LEVONORGESTREL. [Concomitant]
     Active Substance: LEVONORGESTREL
     Dosage: 52 MG, UNK
  2. FINACEA [Suspect]
     Active Substance: AZELAIC ACID
     Indication: ACNE
     Dosage: UNK
  3. FINACEA [Suspect]
     Active Substance: AZELAIC ACID
     Indication: ACNE CYSTIC

REACTIONS (1)
  - Drug effect incomplete [None]
